FAERS Safety Report 5604561-6 (Version None)
Quarter: 2008Q1

REPORT INFORMATION
  Report Type: 
  Country: None (occurrence: None)
  Receive Date: 20080128
  Receipt Date: 20080118
  Transmission Date: 20080703
  Serious: Yes (Hospitalization, Other)
  Sender: FDA-Public Use
  Company Number: US-MERCK-0708USA00148

PATIENT
  Age: 70 Year
  Sex: Male

DRUGS (1)
  1. FOSAMAX [Suspect]
     Indication: OSTEOPOROSIS
     Route: 048

REACTIONS (19)
  - ACTINIC KERATOSIS [None]
  - BURSITIS [None]
  - CATARACT NUCLEAR [None]
  - CLOSTRIDIUM DIFFICILE COLITIS [None]
  - COGNITIVE DISORDER [None]
  - CRYPTOGENIC ORGANISING PNEUMONIA [None]
  - DERMATITIS ALLERGIC [None]
  - ERECTILE DYSFUNCTION [None]
  - GASTROOESOPHAGEAL REFLUX DISEASE [None]
  - HORDEOLUM [None]
  - LICHEN PLANUS [None]
  - OESOPHAGITIS [None]
  - OSTEOARTHRITIS [None]
  - OSTEOMYELITIS [None]
  - OSTEONECROSIS [None]
  - PRESYNCOPE [None]
  - ROTATOR CUFF SYNDROME [None]
  - TOOTH DISCOLOURATION [None]
  - WEIGHT DECREASED [None]
